FAERS Safety Report 5239007-3 (Version None)
Quarter: 2007Q1

REPORT INFORMATION
  Report Type: 
  Country: None (occurrence: None)
  Receive Date: 20070209
  Receipt Date: 20070130
  Transmission Date: 20070707
  Serious: Yes (Hospitalization)
  Sender: FDA-Public Use
  Company Number: 235791

PATIENT
  Age: 63 Year
  Sex: Male
  Weight: 83 kg

DRUGS (3)
  1. BEVACIZUMAB(BEVACIZUMAB) PWDR + SOLVENT,INFUSION SOLN, 100MG [Suspect]
     Indication: GALLBLADDER CANCER
     Dosage: 10 MG/KG, Q2W, INTRAVENOUS
     Route: 042
     Dates: start: 20060801, end: 20070116
  2. GEMCITABINE [Suspect]
     Indication: GALLBLADDER CANCER
     Dosage: 1000 MG/M2, Q2W, INTRAVENOUS
     Route: 042
     Dates: start: 20060801, end: 20070116
  3. OXALIPLATIN [Suspect]
     Indication: GALLBLADDER CANCER
     Dosage: 85 MG/M2, Q2W, INTRAVENOUS
     Route: 042
     Dates: start: 20060801, end: 20070116

REACTIONS (3)
  - CARDIAC FAILURE CONGESTIVE [None]
  - PNEUMONIA [None]
  - RESPIRATORY FAILURE [None]
